FAERS Safety Report 5178336-9 (Version None)
Quarter: 2006Q4

REPORT INFORMATION
  Report Type: 
  Country: None (occurrence: None)
  Receive Date: 20061208
  Receipt Date: 20061204
  Transmission Date: 20070319
  Serious: Yes (Hospitalization)
  Sender: FDA-Public Use
  Company Number: TAP2006Q01951

PATIENT
  Age: 59 Year
  Sex: Male

DRUGS (2)
  1. LUPRON DEPOT-4 [Suspect]
     Indication: PROSTATE CANCER
     Dosage: 30 MG, 1 IN 4 M, INTRAMUSCULAR
     Route: 030
     Dates: start: 20050830
  2. ASPIRIN [Concomitant]

REACTIONS (1)
  - NEOPLASM MALIGNANT [None]
